FAERS Safety Report 4791053-X (Version None)
Quarter: 2005Q4

REPORT INFORMATION
  Report Type: 
  Country: None (occurrence: None)
  Receive Date: 20051005
  Receipt Date: 20050920
  Transmission Date: 20060501
  Serious: Yes (Hospitalization)
  Sender: FDA-Public Use
  Company Number: 2005-02029

PATIENT
  Age: 74 Year
  Sex: Male

DRUGS (10)
  1. VELCADE [Suspect]
     Indication: MANTLE CELL LYMPHOMA
     Dosage: 2.50 MG, IV BOLUS
     Route: 040
     Dates: start: 20050104
  2. TOPROL-XL [Concomitant]
  3. EFFEXOR [Concomitant]
  4. NITROGLYCERIN [Concomitant]
  5. FOLIC ACID [Concomitant]
  6. FLOMAX [Concomitant]
  7. PROSCAR [Concomitant]
  8. LASIX [Concomitant]
  9. OXYCODONE HCL [Concomitant]
  10. POTASSIUM (POTASSIUM) [Concomitant]

REACTIONS (3)
  - CHEST PAIN [None]
  - DYSPNOEA [None]
  - EJECTION FRACTION DECREASED [None]
